FAERS Safety Report 7356017-0 (Version None)
Quarter: 2011Q1

REPORT INFORMATION
  Report Type: 
  Country: None (occurrence: None)
  Receive Date: 20110310
  Receipt Date: 20110310
  Transmission Date: 20110831
  Serious: Yes (Other)
  Sender: FDA-Public Use
  Company Number: None

PATIENT
  Age: 32 Year
  Sex: Female
  Weight: 71.2147 kg

DRUGS (1)
  1. CEFUROXIME [Suspect]
     Indication: PNEUMONIA
     Dosage: 500MG TWICE DAILY PO
     Route: 048
     Dates: start: 20110306, end: 20110307

REACTIONS (4)
  - COUGH [None]
  - RASH [None]
  - PRURITUS [None]
  - BURNING SENSATION [None]
